FAERS Safety Report 7176699-6 (Version None)
Quarter: 2010Q4

REPORT INFORMATION
  Report Type: 
  Country: None (occurrence: None)
  Receive Date: 20101215
  Receipt Date: 20101215
  Transmission Date: 20110411
  Serious: Yes (Life-Threatening, Hospitalization, Disabling)
  Sender: FDA-Public Use
  Company Number: None

PATIENT
  Age: 25 Year
  Sex: Male
  Weight: 75.3 kg

DRUGS (1)
  1. DALTEPARIN SODIUM [Suspect]
     Indication: THROMBOSIS PROPHYLAXIS
     Dosage: 5000 DAILY SQ
     Route: 058
     Dates: start: 20101025, end: 20101110

REACTIONS (7)
  - DEEP VEIN THROMBOSIS [None]
  - LOWER LIMB FRACTURE [None]
  - PNEUMOTHORAX [None]
  - PULMONARY EMBOLISM [None]
  - RIB FRACTURE [None]
  - ROAD TRAFFIC ACCIDENT [None]
  - TRAUMATIC LUNG INJURY [None]
